FAERS Safety Report 20308585 (Version 1)
Quarter: 2022Q1

REPORT INFORMATION
  Report Type: Spontaneous
  Country: DE (occurrence: DE)
  Receive Date: 20220107
  Receipt Date: 20220107
  Transmission Date: 20220423
  Serious: Yes (Other)
  Sender: FDA-Public Use
  Company Number: DE-PFIZER INC-202101867358

PATIENT

DRUGS (1)
  1. DINOPROSTONE [Suspect]
     Active Substance: DINOPROSTONE
     Dosage: 2 MG
     Route: 064

REACTIONS (2)
  - Foetal exposure during delivery [Unknown]
  - Neonatal hypoxia [Recovered/Resolved]
